FAERS Safety Report 10153993 (Version 1)
Quarter: 2014Q2

REPORT INFORMATION
  Report Type: Spontaneous
  Country: US (occurrence: US)
  Receive Date: 20140506
  Receipt Date: 20140506
  Transmission Date: 20141212
  Serious: No
  Sender: FDA-Public Use
  Company Number: US-SHIRE-US201401780

PATIENT
  Sex: Male

DRUGS (2)
  1. VYVANSE [Suspect]
     Indication: ATTENTION DEFICIT/HYPERACTIVITY DISORDER
     Dosage: 40 MG, UNKNOWN
     Route: 048
  2. VYVANSE [Suspect]
     Dosage: 30 MG, UNKNOWN
     Route: 048

REACTIONS (1)
  - Drug ineffective [Unknown]
